FAERS Safety Report 5015903-7 (Version None)
Quarter: 2006Q2

REPORT INFORMATION
  Report Type: 
  Country: None (occurrence: None)
  Receive Date: 20060525
  Receipt Date: 20060504
  Transmission Date: 20061013
  Serious: Yes (Death, Hospitalization, Other)
  Sender: FDA-Public Use
  Company Number: GB200605000267

PATIENT
  Age: 58 Year
  Sex: Male
  Weight: 70.1 kg

DRUGS (5)
  1. GEMCITABINE [Suspect]
     Dosage: 1000 MG/M2,
  2. CO-DYDRAMOL (DIHYDROCODEINE BITARTRATE, PARACETAMOL) [Concomitant]
  3. METOCLOPRAMIDE [Concomitant]
  4. MEGACE [Concomitant]
  5. NOVORAPID /DEN/ (INSULIN ASPART) [Concomitant]

REACTIONS (18)
  - ACTIVATED PARTIAL THROMBOPLASTIN TIME PROLONGED [None]
  - ANAEMIA [None]
  - ATELECTASIS [None]
  - ATRIAL FIBRILLATION [None]
  - BACTERIAL INFECTION [None]
  - BILE DUCT OBSTRUCTION [None]
  - ENTEROCOCCAL INFECTION [None]
  - HAEMATEMESIS [None]
  - INTERNATIONAL NORMALISED RATIO INCREASED [None]
  - KLEBSIELLA INFECTION [None]
  - LIVER ABSCESS [None]
  - NEUTROPHIL COUNT INCREASED [None]
  - OBSTRUCTION [None]
  - PLEURAL EFFUSION [None]
  - PROTHROMBIN TIME PROLONGED [None]
  - RENAL DISORDER [None]
  - SEPSIS [None]
  - THROMBOCYTOPENIA [None]
